FAERS Safety Report 12490224 (Version 2)
Quarter: 2016Q2

REPORT INFORMATION
  Report Type: Spontaneous
  Country: GB (occurrence: GB)
  Receive Date: 20160622
  Receipt Date: 20160627
  Transmission Date: 20160815
  Serious: Yes (Other)
  Sender: FDA-Public Use
  Company Number: GB-PFIZER INC-2016305167

PATIENT
  Age: 68 Year
  Sex: Female

DRUGS (3)
  1. SULFASALAZINE. [Suspect]
     Active Substance: SULFASALAZINE
     Dosage: UNK
  2. METHOTREXATE SODIUM. [Suspect]
     Active Substance: METHOTREXATE SODIUM
     Dosage: UNK
     Route: 065
  3. SIMPONI [Suspect]
     Active Substance: GOLIMUMAB
     Dosage: UNK
     Route: 058

REACTIONS (5)
  - Peripheral swelling [Not Recovered/Not Resolved]
  - Injection site erythema [Recovered/Resolved]
  - Initial insomnia [Unknown]
  - Cough [Not Recovered/Not Resolved]
  - Ureterocele [Unknown]

NARRATIVE: CASE EVENT DATE: 201604
